FAERS Safety Report 13678027 (Version 1)
Quarter: 2017Q2

REPORT INFORMATION
  Report Type: Spontaneous
  Country: US (occurrence: US)
  Receive Date: 20170622
  Receipt Date: 20170622
  Transmission Date: 20170830
  Serious: No
  Sender: FDA-Public Use
  Company Number: US-ASTRAZENECA-2017SE60970

PATIENT
  Age: 13980 Day
  Sex: Female
  Weight: 67.1 kg

DRUGS (7)
  1. TRAZODONE [Concomitant]
     Active Substance: TRAZODONE HYDROCHLORIDE
     Indication: DEPRESSION
     Route: 048
     Dates: start: 201703
  2. TRAZODONE [Concomitant]
     Active Substance: TRAZODONE HYDROCHLORIDE
     Indication: ANXIETY
     Route: 048
     Dates: start: 201703
  3. FIORICET [Concomitant]
     Active Substance: ACETAMINOPHEN\BUTALBITAL\CAFFEINE
     Indication: MIGRAINE
     Dosage: 50/325/40 MG, AS REQUIRED
     Route: 048
  4. PROZAC [Concomitant]
     Active Substance: FLUOXETINE HYDROCHLORIDE
     Indication: ANXIETY
     Route: 048
     Dates: start: 201703
  5. ZOLMITRIPTAN. [Suspect]
     Active Substance: ZOLMITRIPTAN
     Indication: MIGRAINE
     Dosage: 5.0MG AS REQUIRED
     Route: 048
  6. PROZAC [Concomitant]
     Active Substance: FLUOXETINE HYDROCHLORIDE
     Indication: DEPRESSION
     Route: 048
     Dates: start: 201703
  7. ZOLADEX [Suspect]
     Active Substance: GOSERELIN ACETATE
     Indication: ENDOMETRIOSIS
     Dosage: 3.6MG UNKNOWN
     Route: 058
     Dates: start: 20170516

REACTIONS (6)
  - Headache [Not Recovered/Not Resolved]
  - Injection site bruising [Unknown]
  - Arthralgia [Unknown]
  - Needle issue [Unknown]
  - Abdominal distension [Unknown]
  - Abdominal pain [Unknown]

NARRATIVE: CASE EVENT DATE: 20170516
